FAERS Safety Report 5774419-0 (Version None)
Quarter: 2008Q2

REPORT INFORMATION
  Report Type: 
  Country: None (occurrence: None)
  Receive Date: 20080616
  Receipt Date: 20080605
  Transmission Date: 20081010
  Serious: Yes (Hospitalization, Other)
  Sender: FDA-Public Use
  Company Number: US-BAYER-200820304NA

PATIENT
  Age: 16 Year
  Sex: Male

DRUGS (7)
  1. NEXAVAR [Suspect]
     Indication: HEPATIC NEOPLASM MALIGNANT
     Dosage: TOTAL DAILY DOSE: 800 MG  UNIT DOSE: 200 MG
     Route: 048
     Dates: start: 20071201, end: 20080201
  2. NEXAVAR [Suspect]
     Dosage: TOTAL DAILY DOSE: 400 MG  UNIT DOSE: 200 MG
     Route: 048
     Dates: start: 20080201, end: 20080407
  3. ADRIAMYCIN PFS [Suspect]
     Indication: HEPATIC NEOPLASM MALIGNANT
     Dates: start: 20071201, end: 20080407
  4. GABAPENTIN [Concomitant]
     Dosage: TOTAL DAILY DOSE: 1800 MG
     Route: 048
  5. BACTRIM DS [Concomitant]
     Route: 048
  6. NYSTATIN [Concomitant]
     Dosage: TOTAL DAILY DOSE: 20 ML
     Route: 048
  7. PEPCID [Concomitant]
     Dosage: TOTAL DAILY DOSE: 40 MG
     Route: 048

REACTIONS (2)
  - NEURALGIA [None]
  - PULMONARY EMBOLISM [None]
